FAERS Safety Report 21498446 (Version 1)
Quarter: 2022Q4

REPORT INFORMATION
  Report Type: Spontaneous
  Country: US (occurrence: US)
  Receive Date: 20221024
  Receipt Date: 20221024
  Transmission Date: 20230113
  Serious: No
  Sender: FDA-Public Use
  Company Number: US-AMGEN-USASP2022182302

PATIENT
  Sex: Female

DRUGS (1)
  1. EVENITY [Suspect]
     Active Substance: ROMOSOZUMAB-AQQG
     Indication: Osteoporosis
     Dosage: UNK, QMO
     Route: 065
     Dates: start: 2022

REACTIONS (6)
  - Palpitations [Unknown]
  - Chest discomfort [Unknown]
  - Pain in jaw [Unknown]
  - Pain in extremity [Unknown]
  - Groin pain [Unknown]
  - Pelvic pain [Unknown]

NARRATIVE: CASE EVENT DATE: 20220101
